FAERS Safety Report 5457390-0 (Version None)
Quarter: 2007Q3

REPORT INFORMATION
  Report Type: 
  Country: None (occurrence: None)
  Receive Date: 20070918
  Receipt Date: 20070227
  Transmission Date: 20080115
  Serious: No
  Sender: FDA-Public Use
  Company Number: US-ASTRAZENECA-2007UW03715

PATIENT
  Age: 39 Year
  Sex: Female
  Weight: 68 kg

DRUGS (19)
  1. SEROQUEL [Suspect]
     Indication: SLEEP DISORDER
     Route: 048
  2. SEROQUEL [Suspect]
     Indication: NERVOUSNESS
     Route: 048
  3. SEROQUEL [Suspect]
     Indication: FIBROMYALGIA
     Route: 048
  4. SEROQUEL [Suspect]
     Route: 048
  5. SEROQUEL [Suspect]
     Route: 048
  6. SEROQUEL [Suspect]
     Route: 048
  7. SEROQUEL [Suspect]
     Route: 048
  8. SEROQUEL [Suspect]
     Route: 048
  9. SEROQUEL [Suspect]
     Route: 048
  10. LITHIUM CARBONATE [Concomitant]
  11. LAMICTAL [Concomitant]
  12. PROVIGIL [Concomitant]
  13. XANAX [Concomitant]
  14. XANAX [Concomitant]
  15. XYREM [Concomitant]
  16. XYREM [Concomitant]
  17. BIRTH CONTROL PILLS [Concomitant]
  18. ADVAIR DISKUS 100/50 [Concomitant]
  19. ALBUTEROL [Concomitant]

REACTIONS (4)
  - DRUG INEFFECTIVE [None]
  - GAIT DISTURBANCE [None]
  - IRRITABILITY [None]
  - SPEECH DISORDER [None]
